FAERS Safety Report 6725681-9 (Version None)
Quarter: 2010Q2

REPORT INFORMATION
  Report Type: 
  Country: None (occurrence: None)
  Receive Date: 20100513
  Receipt Date: 20100513
  Transmission Date: 20101027
  Serious: Yes (Other)
  Sender: FDA-Public Use
  Company Number: None

PATIENT
  Sex: Female
  Weight: 54.4316 kg

DRUGS (1)
  1. SIMVASTATIN [Suspect]
     Dosage: 40 MG 1 X DAY
     Dates: start: 20091201, end: 20100503

REACTIONS (4)
  - HYPOAESTHESIA [None]
  - MYALGIA [None]
  - PAIN IN EXTREMITY [None]
  - PARAESTHESIA [None]
